FAERS Safety Report 10492828 (Version 1)
Quarter: 2014Q4

REPORT INFORMATION
  Report Type: Spontaneous
  Country: US (occurrence: US)
  Receive Date: 20141002
  Receipt Date: 20141002
  Transmission Date: 20150528
  Serious: No
  Sender: FDA-Public Use
  Company Number: US-GLAXOSMITHKLINE-A1075915A

PATIENT
  Age: 71 Year
  Sex: Female

DRUGS (12)
  1. SERTRALINE [Concomitant]
     Active Substance: SERTRALINE HYDROCHLORIDE
  2. PRAVASTATIN [Concomitant]
     Active Substance: PRAVASTATIN\PRAVASTATIN SODIUM
  3. ATENOLOL. [Concomitant]
     Active Substance: ATENOLOL
  4. BUPROPION [Concomitant]
     Active Substance: BUPROPION
  5. CALCIUM [Concomitant]
     Active Substance: CALCIUM
  6. METFORMIN [Concomitant]
     Active Substance: METFORMIN HYDROCHLORIDE
  7. VITAMIN [Concomitant]
     Active Substance: VITAMINS
  8. OMEPRAZOLE. [Concomitant]
     Active Substance: OMEPRAZOLE
  9. ADVAIR HFA [Suspect]
     Active Substance: FLUTICASONE PROPIONATE\SALMETEROL XINAFOATE
     Indication: ASTHMA
     Dosage: 1PUFF TWICE PER DAY
     Route: 055
  10. DICLOFENAC [Concomitant]
     Active Substance: DICLOFENAC
  11. HCTZ [Concomitant]
     Active Substance: HYDROCHLOROTHIAZIDE
  12. URSODIOL. [Concomitant]
     Active Substance: URSODIOL

REACTIONS (9)
  - Hypersensitivity [Unknown]
  - Pain in extremity [Recovering/Resolving]
  - Cough [Unknown]
  - Contusion [Unknown]
  - Laryngitis [Unknown]
  - Fall [Unknown]
  - Nasopharyngitis [Recovering/Resolving]
  - Walking aid user [Unknown]
  - Product quality issue [Unknown]

NARRATIVE: CASE EVENT DATE: 201406
